FAERS Safety Report 5037359-0 (Version None)
Quarter: 2006Q2

REPORT INFORMATION
  Report Type: 
  Country: None (occurrence: None)
  Receive Date: 20060605
  Receipt Date: 20060302
  Transmission Date: 20061013
  Serious: No
  Sender: FDA-Public Use
  Company Number: IND-AE-06-SAN-012

PATIENT
  Age: 67 Year
  Sex: Male

DRUGS (1)
  1. SANCTURA [Suspect]
     Indication: HYPERTONIC BLADDER
     Dosage: 20 MG QD ORAL
     Route: 048
     Dates: start: 20060201

REACTIONS (1)
  - CONSTIPATION [None]
